FAERS Safety Report 9917110 (Version 3)
Quarter: 2014Q1

REPORT INFORMATION
  Report Type: Report from Study
  Country: DE (occurrence: DE)
  Receive Date: 20140221
  Receipt Date: 20140310
  Transmission Date: 20141002
  Serious: Yes (Hospitalization)
  Sender: FDA-Public Use
  Company Number: DE-EISAI INC-E7389-02549-CLI-DE

PATIENT
  Age: 70 Year
  Sex: Male
  Weight: 55.1 kg

DRUGS (6)
  1. ERIBULIN [Suspect]
     Indication: NON-SMALL CELL LUNG CANCER
     Dosage: 1.4 MG/M2
     Route: 041
     Dates: start: 20120305, end: 20120521
  2. ETORICOXIB [Concomitant]
  3. METAMIZOLE [Concomitant]
  4. PIRACETAM [Concomitant]
  5. ASS [Concomitant]
     Indication: CEREBROVASCULAR ACCIDENT
     Dates: start: 201009
  6. ATROVENT [Concomitant]
     Indication: CHRONIC OBSTRUCTIVE PULMONARY DISEASE
     Dosage: 25
     Dates: start: 201008

REACTIONS (1)
  - General physical health deterioration [Recovered/Resolved]
